FAERS Safety Report 24308478 (Version 4)
Quarter: 2025Q2

REPORT INFORMATION
  Report Type: Spontaneous
  Country: FR (occurrence: FR)
  Receive Date: 20240911
  Receipt Date: 20250502
  Transmission Date: 20250717
  Serious: Yes (Death)
  Sender: NOVARTIS
  Company Number: FR-002147023-NVSC2024FR180531

PATIENT
  Age: 9 Month
  Sex: Female
  Weight: 7.8 kg

DRUGS (1)
  1. ZOLGENSMA [Suspect]
     Active Substance: ONASEMNOGENE ABEPARVOVEC-XIOI
     Indication: Spinal muscular atrophy
     Route: 042
     Dates: start: 20240717, end: 20240717

REACTIONS (4)
  - Sudden infant death syndrome [Fatal]
  - Brain stem syndrome [Fatal]
  - Bulbar palsy [Fatal]
  - Malaise [Fatal]

NARRATIVE: CASE EVENT DATE: 20240801
